FAERS Safety Report 24832337 (Version 1)
Quarter: 2025Q1

REPORT INFORMATION
  Report Type: Spontaneous
  Country: US (occurrence: US)
  Receive Date: 20250110
  Receipt Date: 20250110
  Transmission Date: 20250408
  Serious: No
  Sender: BIOMARIN
  Company Number: US-BIOMARINAP-US-2025-162948

PATIENT

DRUGS (1)
  1. VIMIZIM [Suspect]
     Active Substance: ELOSULFASE ALFA
     Indication: Product used for unknown indication
     Route: 065

REACTIONS (3)
  - Injury associated with device [Unknown]
  - Accidental exposure to product [Unknown]
  - Product container seal issue [Unknown]
